FAERS Safety Report 13745489 (Version 4)
Quarter: 2017Q3

REPORT INFORMATION
  Report Type: Report from Study
  Country: BR (occurrence: BR)
  Receive Date: 20170712
  Receipt Date: 20170808
  Transmission Date: 20171127
  Serious: Yes (Death, Hospitalization, Other)
  Sender: FDA-Public Use
  Company Number: PHHY2015BR172490

PATIENT
  Sex: Male
  Weight: 60 kg

DRUGS (6)
  1. CABERGOLINE. [Concomitant]
     Active Substance: CABERGOLINE
     Indication: ACROMEGALY
     Dosage: 5 MG, 5 TIMES A WEEK
     Route: 065
  2. PEGVISOMANT [Concomitant]
     Active Substance: PEGVISOMANT
     Dosage: 2 DF, QD
     Route: 065
  3. DURATESTON [Concomitant]
     Active Substance: TESTOSTERONE
     Indication: ACROMEGALY
     Dosage: EVERY 15 DAYS
     Route: 065
  4. SANDOSTATIN LAR DEPOT [Suspect]
     Active Substance: OCTREOTIDE ACETATE
     Indication: ACROMEGALY
     Dosage: 40 MG (2 AMPOULES OF 20 MG), QMO
     Route: 030
     Dates: start: 201012
  5. PEGVISOMANT [Concomitant]
     Active Substance: PEGVISOMANT
     Indication: ACROMEGALY
     Dosage: 1 DF, QD (HE BELIEVED)
     Route: 065
  6. SANDOSTATIN LAR DEPOT [Suspect]
     Active Substance: OCTREOTIDE ACETATE
     Dosage: 30 MG, UNK
     Route: 065

REACTIONS (13)
  - Infection [Unknown]
  - Asthenia [Unknown]
  - Decreased appetite [Unknown]
  - Neuroendocrine tumour [Unknown]
  - Therapeutic response decreased [Unknown]
  - Abdominal pain [Unknown]
  - Cholelithiasis [Unknown]
  - Septic shock [Fatal]
  - Malignant neoplasm progression [Unknown]
  - Cholangiocarcinoma [Fatal]
  - Acute kidney injury [Fatal]
  - Nausea [Unknown]
  - Weight decreased [Unknown]
